FAERS Safety Report 7981955-5 (Version None)
Quarter: 2011Q4

REPORT INFORMATION
  Report Type: 
  Country: None (occurrence: None)
  Receive Date: 20111215
  Receipt Date: 20111206
  Transmission Date: 20120403
  Serious: Yes (Hospitalization)
  Sender: FDA-Public Use
  Company Number: US-BAYER-2011-048202

PATIENT
  Age: 28 Year
  Sex: Female
  Weight: 83.9 kg

DRUGS (3)
  1. DROSPIRENONE AND ETHINYL ESTRADIOL [Suspect]
     Indication: CONTRACEPTION
     Dosage: UNK
     Dates: start: 20081101, end: 20090401
  2. DORYX [Concomitant]
     Indication: ACNE
     Dosage: 150 MG, QD
     Dates: start: 20090101, end: 20090301
  3. MOMETASONE FUROATE [Concomitant]
     Dosage: 15 MG, BID
     Dates: start: 20090301

REACTIONS (5)
  - DEEP VEIN THROMBOSIS [None]
  - PAIN [None]
  - EMOTIONAL DISTRESS [None]
  - FEAR OF DISEASE [None]
  - ANHEDONIA [None]
